FAERS Safety Report 6701185 (Version 4)
Quarter: 2014Q2

REPORT INFORMATION
  Report Type: Spontaneous
  Country: PT (occurrence: PT)
  Receive Date: 20080716
  Receipt Date: 20140624
  Transmission Date: 20141212
  Serious: Yes (Other)
  Sender: FDA-Public Use
  Company Number: PT-JNJFOC-20080701994

PATIENT
  Age: 51 Year
  Sex: Male
  Weight: 60 kg

DRUGS (2)
  1. REMICADE [Suspect]
     Indication: COLITIS ULCERATIVE
     Dosage: TOTAL OF 6 INFUSIONS
     Route: 042
     Dates: start: 20080327, end: 20081218
  2. 5-ASA [Concomitant]
     Dates: start: 20001115

REACTIONS (1)
  - Pulmonary tuberculosis [Recovered/Resolved]
